FAERS Safety Report 18098400 (Version 1)
Quarter: 2020Q3

REPORT INFORMATION
  Report Type: Spontaneous
  Country: US (occurrence: US)
  Receive Date: 20200731
  Receipt Date: 20200731
  Transmission Date: 20201103
  Serious: No
  Sender: FDA-Public Use
  Company Number: US-PFIZER INC-2020291396

PATIENT
  Age: 59 Year
  Sex: Female

DRUGS (1)
  1. IBRANCE [Suspect]
     Active Substance: PALBOCICLIB
     Dosage: 100 MG, CYCLIC(PO (ORAL) X 21D, THEN 7D OFF)
     Route: 048
     Dates: start: 20200708

REACTIONS (1)
  - Gastrooesophageal reflux disease [Not Recovered/Not Resolved]
